FAERS Safety Report 10647226 (Version 1)
Quarter: 2014Q4

REPORT INFORMATION
  Report Type: Spontaneous
  Country: US (occurrence: US)
  Receive Date: 20141211
  Receipt Date: 20141211
  Transmission Date: 20150529
  Serious: No
  Sender: FDA-Public Use
  Company Number: US-INCYTE CORPORATION-2014IN003383

PATIENT
  Age: 59 Year
  Sex: Male

DRUGS (17)
  1. JAKAFI [Suspect]
     Active Substance: RUXOLITINIB
     Dosage: 5 MG, BID
     Route: 048
  2. ADVIL [Concomitant]
     Active Substance: IBUPROFEN
  3. AZELAIC ACID [Concomitant]
     Active Substance: AZELAIC ACID
  4. LORATADINE. [Concomitant]
     Active Substance: LORATADINE
  5. FISH OIL [Concomitant]
     Active Substance: FISH OIL
  6. GINSENG [Concomitant]
  7. HYDROCODONE W/APAP                 /01554201/ [Concomitant]
  8. CYCLOBENZAPRINE [Concomitant]
     Active Substance: CYCLOBENZAPRINE
  9. ACIDOPHILUS [Concomitant]
     Active Substance: LACTOBACILLUS ACIDOPHILUS
  10. RESTASIS [Concomitant]
     Active Substance: CYCLOSPORINE
  11. ACYCLOVIR                          /00587301/ [Concomitant]
     Active Substance: ACYCLOVIR
  12. EVENING PRIMROSE OIL [Concomitant]
     Active Substance: EVENING PRIMROSE OIL
  13. FLAXSEED [Concomitant]
     Active Substance: FLAX SEED
  14. LORAZEPAM. [Concomitant]
     Active Substance: LORAZEPAM
  15. HYDROXYUREA. [Concomitant]
     Active Substance: HYDROXYUREA
  16. TAMSULOSIN [Concomitant]
     Active Substance: TAMSULOSIN
  17. PROBENECID. [Concomitant]
     Active Substance: PROBENECID

REACTIONS (2)
  - Oropharyngeal pain [Unknown]
  - Cough [Unknown]

NARRATIVE: CASE EVENT DATE: 201409
